FAERS Safety Report 19930758 (Version 2)
Quarter: 2023Q1

REPORT INFORMATION
  Report Type: Spontaneous
  Country: CN (occurrence: CN)
  Receive Date: 20211007
  Receipt Date: 20230329
  Transmission Date: 20230418
  Serious: Yes (Hospitalization, Other)
  Sender: FDA-Public Use
  Company Number: CN-009507513-2110CHN000969

PATIENT
  Age: 32 Year
  Sex: Male

DRUGS (1)
  1. PEMBROLIZUMAB [Suspect]
     Active Substance: PEMBROLIZUMAB
     Indication: Hepatocellular carcinoma
     Dosage: 200 MG INTRAVENOUSLY EVERY 3 WEEKS
     Route: 042
     Dates: start: 20200430, end: 20200818

REACTIONS (2)
  - Stevens-Johnson syndrome [Unknown]
  - Acquired porokeratosis [Unknown]

NARRATIVE: CASE EVENT DATE: 20200101
